FAERS Safety Report 20534814 (Version 2)
Quarter: 2022Q1

REPORT INFORMATION
  Report Type: Spontaneous
  Country: CN (occurrence: None)
  Receive Date: 20220302
  Receipt Date: 20220321
  Transmission Date: 20220423
  Serious: Yes (Hospitalization)
  Sender: FDA-Public Use
  Company Number: CN-Merck Healthcare KGaA-9302906

PATIENT
  Age: 54 Year
  Sex: Male

DRUGS (3)
  1. GLUCOPHAGE XR [Suspect]
     Active Substance: METFORMIN HYDROCHLORIDE
     Indication: Blood glucose increased
     Dosage: EXTENDED RELEASE TABLETS
     Route: 048
     Dates: start: 20211106, end: 20211205
  2. GLUCOPHAGE XR [Suspect]
     Active Substance: METFORMIN HYDROCHLORIDE
     Dosage: EXTENDED RELEASE TABLETS
     Route: 048
     Dates: start: 20211206, end: 20220118
  3. GLUCOPHAGE XR [Suspect]
     Active Substance: METFORMIN HYDROCHLORIDE
     Dosage: EXTENDED RELEASE TABLETS
     Route: 048
     Dates: start: 20220118, end: 20220214

REACTIONS (1)
  - Thalamus haemorrhage [Recovering/Resolving]

NARRATIVE: CASE EVENT DATE: 20220211
